FAERS Safety Report 7331991-7 (Version None)
Quarter: 2011Q1

REPORT INFORMATION
  Report Type: 
  Country: None (occurrence: None)
  Receive Date: 20110304
  Receipt Date: 20100729
  Transmission Date: 20110831
  Serious: Yes (Hospitalization, Other)
  Sender: FDA-Public Use
  Company Number: US-PFIZER INC-2009286334

PATIENT
  Sex: Female
  Weight: 70 kg

DRUGS (13)
  1. COUMADIN [Concomitant]
     Dosage: 4 MG, ALTERNATE DAY
     Route: 048
  2. DILANTIN [Suspect]
     Indication: CONVULSION
     Dosage: 100 MG, 3X/DAY
     Route: 048
     Dates: start: 20030901, end: 20031101
  3. LIPITOR [Concomitant]
     Dosage: 20 MG, 1X/DAY
  4. ATENOLOL [Concomitant]
     Dosage: 50 MG, 2X/DAY
  5. DOCUSATE SODIUM [Concomitant]
     Dosage: 200 MG, 2X/DAY
  6. XANAX [Concomitant]
     Dosage: 1.5 MG, UNK
  7. PROTONIX [Concomitant]
     Dosage: 40 MG, 1X/DAY
  8. IRON SULFATETHIAMIN COMPOUND TAB [Concomitant]
     Dosage: 300 MG, 3X/DAY
  9. ACETYLSALICYLIC ACID [Concomitant]
     Dosage: 81 MG, 1X/DAY
  10. CALCIUM [Concomitant]
     Dosage: UNK
  11. ACETAMINOPHEN AND HYDROCODONE BITARTRATE [Concomitant]
     Dosage: UNK
  12. COUMADIN [Concomitant]
     Dosage: 6 MG, ALTERNATE DAY
     Route: 048
  13. MEDROL [Concomitant]
     Dosage: UNK

REACTIONS (1)
  - STEVENS-JOHNSON SYNDROME [None]
